FAERS Safety Report 13536866 (Version 1)
Quarter: 2017Q2

REPORT INFORMATION
  Report Type: Spontaneous
  Country: US (occurrence: US)
  Receive Date: 20170511
  Receipt Date: 20170511
  Transmission Date: 20170830
  Serious: No
  Sender: FDA-Public Use
  Company Number: US-PFIZER INC-2017197449

PATIENT
  Sex: Female

DRUGS (1)
  1. LYRICA [Suspect]
     Active Substance: PREGABALIN
     Indication: NEUROPATHY PERIPHERAL
     Dosage: UNK
     Dates: start: 2017

REACTIONS (4)
  - Condition aggravated [Not Recovered/Not Resolved]
  - Weight increased [Unknown]
  - Vision blurred [Unknown]
  - Peripheral swelling [Not Recovered/Not Resolved]
